FAERS Safety Report 17823136 (Version 2)
Quarter: 2020Q2

REPORT INFORMATION
  Report Type: Report from Study
  Country: AR (occurrence: AR)
  Receive Date: 20200526
  Receipt Date: 20200609
  Transmission Date: 20200714
  Serious: Yes (Hospitalization, Other)
  Sender: FDA-Public Use
  Company Number: NVSC2020AR143708

PATIENT
  Sex: Female

DRUGS (5)
  1. DIOVAN D [Suspect]
     Active Substance: HYDROCHLOROTHIAZIDE\VALSARTAN
     Dosage: UNK
     Route: 065
  2. THYROXINE [Concomitant]
     Active Substance: LEVOTHYROXINE
     Indication: HYPOTHYROIDISM
     Dosage: 10 YEARS AGO
     Route: 065
  3. SINTROM [Suspect]
     Active Substance: ACENOCOUMAROL
     Indication: HYPERHOMOCYSTEINAEMIA
     Dosage: 4 OT
     Route: 065
     Dates: start: 2012
  4. BLASTOP [Concomitant]
     Indication: HYPERHOMOCYSTEINAEMIA
     Dosage: UNK
     Route: 065
     Dates: start: 2012
  5. DIOVAN D [Suspect]
     Active Substance: HYDROCHLOROTHIAZIDE\VALSARTAN
     Indication: HYPERTENSION
     Dosage: 1 AND HALF X 160 MG
     Route: 065

REACTIONS (7)
  - Blood pressure decreased [Unknown]
  - Breast cancer female [Unknown]
  - Blood pressure increased [Unknown]
  - Anaemia [Unknown]
  - Coeliac disease [Unknown]
  - Headache [Unknown]
  - Wrong technique in product usage process [Unknown]

NARRATIVE: CASE EVENT DATE: 2017
